FAERS Safety Report 9202397 (Version 3)
Quarter: 2013Q2

REPORT INFORMATION
  Report Type: Spontaneous
  Country: BR (occurrence: BR)
  Receive Date: 20130401
  Receipt Date: 20130506
  Transmission Date: 20140414
  Serious: Yes (Other)
  Sender: FDA-Public Use
  Company Number: BR-PFIZER INC-2013062604

PATIENT
  Age: 60 Year
  Sex: Female
  Weight: 80 kg

DRUGS (7)
  1. ZOLOFT [Suspect]
     Indication: ANXIETY
     Dosage: UNK
     Route: 048
     Dates: start: 201212, end: 201212
  2. SERTRALINE HYDROCHLORIDE [Suspect]
     Indication: PANIC DISORDER
     Dosage: UNK
     Route: 048
     Dates: start: 201301, end: 2013
  3. SERTRALINE HYDROCHLORIDE [Suspect]
     Indication: ANXIETY
  4. LOSARTAN [Concomitant]
     Indication: HYPERTENSION
     Dosage: 12.5 MG (HALF TABLET OF 25MG), 1X/DAY
     Dates: start: 20120815
  5. PURAN T4 [Concomitant]
     Indication: THYROID DISORDER
     Dosage: 75 UG, 1X/DAY
     Dates: start: 2003
  6. RIVOTRIL [Concomitant]
     Indication: FEELING ABNORMAL
     Dosage: 0.25 MG, AS NEEDED
     Route: 060
     Dates: start: 20120716
  7. ZOLOFT [Suspect]
     Indication: PANIC DISORDER
     Dosage: 50 MG, 1X/DAY
     Route: 048
     Dates: start: 20120719, end: 201208

REACTIONS (13)
  - Malaise [Unknown]
  - Fear [Unknown]
  - Headache [Unknown]
  - Tremor [Unknown]
  - Hypoaesthesia [Unknown]
  - Diarrhoea [Unknown]
  - Feeling abnormal [Unknown]
  - Dizziness [Not Recovered/Not Resolved]
  - Nausea [Not Recovered/Not Resolved]
  - Insomnia [Not Recovered/Not Resolved]
  - Palpitations [Unknown]
  - Dry mouth [Unknown]
  - Hypoaesthesia oral [Unknown]
